FAERS Safety Report 4775422-X (Version None)
Quarter: 2005Q3

REPORT INFORMATION
  Report Type: 
  Country: None (occurrence: None)
  Receive Date: 20050921
  Receipt Date: 20050921
  Transmission Date: 20060218
  Serious: Yes (Other)
  Sender: FDA-Public Use
  Company Number: None

PATIENT
  Age: 19 Year
  Sex: Female
  Weight: 109.7705 kg

DRUGS (1)
  1. DEPO-PROVERA [Suspect]
     Indication: CONTRACEPTION
     Dosage: INJECTION 3 MONTH INTERVALS
     Dates: start: 19960801, end: 19970401

REACTIONS (4)
  - HIRSUTISM [None]
  - PAIN [None]
  - POLYCYSTIC OVARIES [None]
  - WEIGHT INCREASED [None]
